FAERS Safety Report 7021445-X (Version None)
Quarter: 2010Q3

REPORT INFORMATION
  Report Type: 
  Country: None (occurrence: None)
  Receive Date: 20100929
  Receipt Date: 20100920
  Transmission Date: 20110219
  Serious: Yes (Death, Other)
  Sender: FDA-Public Use
  Company Number: US-AMGEN-QUU435714

PATIENT
  Sex: Male
  Weight: 88.8 kg

DRUGS (2)
  1. NPLATE [Suspect]
     Indication: IDIOPATHIC THROMBOCYTOPENIC PURPURA
     Dates: start: 20090130, end: 20090130
  2. AMICAR [Concomitant]

REACTIONS (4)
  - DRUG INEFFECTIVE [None]
  - LUNG INFECTION [None]
  - MYELODYSPLASTIC SYNDROME [None]
  - SEPSIS [None]
